FAERS Safety Report 17255574 (Version 2)
Quarter: 2020Q3

REPORT INFORMATION
  Report Type: Spontaneous
  Country: US (occurrence: US)
  Receive Date: 20200110
  Receipt Date: 20200206
  Transmission Date: 20201105
  Serious: Yes (Death, Hospitalization, Other)
  Sender: FDA-Public Use
  Company Number: US-ROCHE-2517067

PATIENT
  Age: 86 Year
  Sex: Female
  Weight: 82 kg

DRUGS (13)
  1. POLATUZUMAB VEDOTIN. [Suspect]
     Active Substance: POLATUZUMAB VEDOTIN
     Indication: DIFFUSE LARGE B-CELL LYMPHOMA
     Dosage: ONGOING: YES
     Route: 042
     Dates: start: 20190804
  2. NEULASTA [Suspect]
     Active Substance: PEGFILGRASTIM
     Indication: PRODUCT USED FOR UNKNOWN INDICATION
     Route: 065
     Dates: start: 20190807, end: 20190807
  3. BENDAMUSTINE [Suspect]
     Active Substance: BENDAMUSTINE
     Indication: PRODUCT USED FOR UNKNOWN INDICATION
     Dosage: ONGOING: UNKNOWN
     Route: 065
     Dates: start: 20190804
  4. ZOVIRAX [Concomitant]
     Active Substance: ACYCLOVIR
  5. SIMVACOR [Concomitant]
     Active Substance: SIMVASTATIN
  6. AMBIEN [Concomitant]
     Active Substance: ZOLPIDEM TARTRATE
  7. CARDILOC [Concomitant]
     Active Substance: BISOPROLOL FUMARATE
  8. APIXABAN [Concomitant]
     Active Substance: APIXABAN
     Route: 065
     Dates: start: 2012, end: 20190831
  9. ELIQUIS [Concomitant]
     Active Substance: APIXABAN
  10. DUROGESIC [Concomitant]
     Active Substance: FENTANYL
  11. RITUXIMAB. [Suspect]
     Active Substance: RITUXIMAB
     Indication: PRODUCT USED FOR UNKNOWN INDICATION
     Route: 042
     Dates: start: 20190804, end: 20190807
  12. MAGNESIUM DIASPORAL [MAGNESIUM] [Concomitant]
  13. DIOVAN [Concomitant]
     Active Substance: VALSARTAN

REACTIONS (13)
  - Multiple organ dysfunction syndrome [Fatal]
  - Acute kidney injury [Unknown]
  - Leukocytosis [Unknown]
  - Immunodeficiency [Fatal]
  - Chronic kidney disease [Unknown]
  - Atrial fibrillation [Unknown]
  - Altered state of consciousness [Unknown]
  - Acute myocardial infarction [Unknown]
  - Hypotension [Unknown]
  - Hyperkalaemia [Unknown]
  - Lactic acidosis [Unknown]
  - Sepsis [Fatal]
  - Blood lactate dehydrogenase increased [Unknown]
